FAERS Safety Report 10031335 (Version 2)
Quarter: 2014Q1

REPORT INFORMATION
  Report Type: Spontaneous
  Country: US (occurrence: US)
  Receive Date: 20140324
  Receipt Date: 20140324
  Transmission Date: 20141002
  Serious: Yes (Hospitalization)
  Sender: FDA-Public Use
  Company Number: US-SHIRE-ALL1-2014-00932

PATIENT
  Age: 47 Year
  Sex: Male
  Weight: 79.37 kg

DRUGS (1)
  1. LIALDA [Suspect]
     Indication: COLITIS ULCERATIVE
     Dosage: 4 TABLETS, 1X/DAY:QD
     Route: 048
     Dates: start: 201312, end: 20140203

REACTIONS (1)
  - Drug ineffective [Recovered/Resolved]
